FAERS Safety Report 22725467 (Version 2)
Quarter: 2024Q1

REPORT INFORMATION
  Report Type: Spontaneous
  Country: CA (occurrence: CA)
  Receive Date: 20230719
  Receipt Date: 20240216
  Transmission Date: 20240410
  Serious: Yes (Death, Hospitalization, Other)
  Sender: FDA-Public Use
  Company Number: CA-HLS-202301760

PATIENT
  Age: 55 Year
  Sex: Male

DRUGS (7)
  1. CLOZAPINE [Suspect]
     Active Substance: CLOZAPINE
     Indication: Product used for unknown indication
     Dosage: TABLETS DOSAGE FORM
     Route: 065
  2. ACETAMINOPHEN [Concomitant]
     Active Substance: ACETAMINOPHEN
     Dosage: 1 EVERY 6 HOURS?AMOUNT: 650 MILLIGRAM?NOT SPECIFIED DOSAGE FORM
     Route: 065
  3. ALPRAZOLAM [Concomitant]
     Active Substance: ALPRAZOLAM
     Indication: Product used for unknown indication
     Dosage: AMOUNT: 250 MILLIGRAM?TABLETS DOSAGE FORM
     Route: 065
  4. ALPRAZOLAM [Concomitant]
     Active Substance: ALPRAZOLAM
     Indication: Product used for unknown indication
     Route: 065
  5. HYDROMORPHONE [Concomitant]
     Active Substance: HYDROMORPHONE
     Dosage: 1 EVERY 4 HOURS?AMOUNT: 0.5 MILLIGRAM?NOT SPECIFIED DOSAGE FORM
     Route: 065
  6. NICOTINE [Concomitant]
     Active Substance: NICOTINE
     Dosage: AMOUNT: 14 MILLIGRAM?NOT SPECIFIED DOSAGE FORM
     Route: 065
  7. ALBUTEROL [Concomitant]
     Active Substance: ALBUTEROL
     Dosage: 1 EVERY 4 HOURS?AMOUNT: 100 MILLIGRAM?NOT SPECIFIED DOSAGE FORM
     Route: 065

REACTIONS (4)
  - Death [Fatal]
  - Hepatic cancer [Fatal]
  - Hospice care [Fatal]
  - Lung cancer metastatic [Fatal]
